FAERS Safety Report 13931911 (Version 10)
Quarter: 2018Q1

REPORT INFORMATION
  Report Type: Report from Study
  Country: US (occurrence: US)
  Receive Date: 20170904
  Receipt Date: 20180212
  Transmission Date: 20180508
  Serious: Yes (Death, Hospitalization, Other)
  Sender: FDA-Public Use
  Company Number: US-GILEAD-2017-0291224

PATIENT
  Age: 52 Year
  Sex: Female
  Weight: 55.4 kg

DRUGS (5)
  1. COUMADIN [Concomitant]
     Active Substance: WARFARIN SODIUM
  2. FENTANYL. [Suspect]
     Active Substance: FENTANYL
     Indication: NEOPLASM MALIGNANT
     Route: 065
  3. TYVASO [Concomitant]
     Active Substance: TREPROSTINIL
  4. MORPHINE [Suspect]
     Active Substance: MORPHINE
     Indication: NEOPLASM MALIGNANT
     Route: 065
  5. AMBRISENTAN [Suspect]
     Active Substance: AMBRISENTAN
     Indication: PULMONARY ARTERIAL HYPERTENSION
     Dosage: 10 MG, QD
     Route: 065
     Dates: start: 20130806

REACTIONS (10)
  - Pulmonary arterial hypertension [Unknown]
  - Sepsis [Unknown]
  - Gallbladder cancer [Fatal]
  - Pancreatic pseudocyst [Unknown]
  - Unevaluable event [Unknown]
  - Intestinal obstruction [Unknown]
  - Mental status changes [Unknown]
  - Device dislocation [Unknown]
  - Gastrointestinal tube insertion [Unknown]
  - Intentional product use issue [Unknown]
